FAERS Safety Report 14887151 (Version 7)
Quarter: 2020Q2

REPORT INFORMATION
  Report Type: Spontaneous
  Country: DK (occurrence: DK)
  Receive Date: 20180513
  Receipt Date: 20200630
  Transmission Date: 20200713
  Serious: Yes (Hospitalization, Other)
  Sender: FDA-Public Use
  Company Number: DK-009507513-1805DNK004479

PATIENT
  Age: 23 Year
  Sex: Female
  Weight: 67 kg

DRUGS (14)
  1. AVAMYS [Suspect]
     Active Substance: FLUTICASONE FUROATE
     Indication: RHINORRHOEA
     Dosage: STRENGTH: 27.5 MICROGRAMS; 27.5 MICROGRAM, QD
     Route: 045
     Dates: start: 20170111
  2. IOPAMIDOL [Suspect]
     Active Substance: IOPAMIDOL
     Dosage: UNK
  3. MONTELUKAST ACCORD [Concomitant]
     Active Substance: MONTELUKAST\MONTELUKAST SODIUM
     Indication: ASTHMA
     Dosage: STRENGTH: 10 MG; 10 MILLIGRAM, QD
     Route: 048
     Dates: start: 20170111, end: 201711
  4. FLUTICASONE. [Concomitant]
     Active Substance: FLUTICASONE
     Indication: RHINORRHOEA
     Dosage: STRENGTH: 27.5 MICROGRAMS; 1 DOSAGE FORM, QD
     Route: 045
     Dates: start: 20170111
  5. MILDISON LIPID [Concomitant]
     Indication: RASH
     Dosage: 1 DOSAGE FORM, BID (DOSE: 1 APPLICATION TWICE DAILY. STRENGTH: 10 MG/G)
     Route: 003
     Dates: start: 20141006
  6. BUFOMIX EASYHALER [Suspect]
     Active Substance: BUDESONIDE\FORMOTEROL FUMARATE
     Indication: ASTHMA
     Dosage: STRENGTH: 9+320 MICROGRAMS/DOSE; 2 DOSAGE FORM, QD
     Route: 055
     Dates: start: 20161014
  7. FEXOFENADINE [Concomitant]
     Active Substance: FEXOFENADINE HYDROCHLORIDE
     Indication: SEASONAL ALLERGY
     Dosage: 120 MILLIGRAM, QD (STRENGTH: 120 MG)
     Route: 048
     Dates: start: 20160425
  8. DESLORATADINE. [Concomitant]
     Active Substance: DESLORATADINE
     Indication: SEASONAL ALLERGY
     Dosage: STRENGTH: 5 MG.
     Route: 048
     Dates: start: 20170111
  9. ROXITHROMYCIN [Concomitant]
     Active Substance: ROXITHROMYCIN
     Indication: OTITIS MEDIA
     Dosage: STRENGTH: 300 MG; 300 MILLIGRAM, QD
     Route: 048
     Dates: start: 20171228, end: 20180226
  10. GIONA EASYHALER [Suspect]
     Active Substance: BUDESONIDE
     Indication: ASTHMA
     Dosage: STRENGTH: 200 MICROGRAMS/DOSE. DOSE: 1 INHALE MORNING AND 2 INHALES EVENING
     Route: 055
     Dates: start: 201610
  11. MICROGYN [Concomitant]
     Active Substance: ETHINYL ESTRADIOL\LEVONORGESTREL
     Indication: CONTRACEPTION
     Dosage: STRENGTH: 0.15 + 0.03 MG; 1 DOSAGE FORM, QD
     Route: 048
     Dates: start: 20170829, end: 201804
  12. MOMETASONE FUROATE. [Suspect]
     Active Substance: MOMETASONE FUROATE
     Indication: ECZEMA
     Dosage: STRENGTH: 0.1 %
     Route: 003
     Dates: start: 2013
  13. BUVENTOL EASYHALER [Concomitant]
     Active Substance: ALBUTEROL SULFATE
     Indication: ASTHMA
     Dosage: STRENGTH: 200 MICROGRAMS/DOSE
     Route: 055
     Dates: start: 20161014
  14. OPATANOL [Concomitant]
     Active Substance: OLOPATADINE
     Indication: EYE INFECTION
     Dosage: STRENGTH: 1 MG/ML. DOSE: IN BOTH EYES; 2 GTT DROPS, QD
     Route: 050
     Dates: start: 20170111

REACTIONS (16)
  - Arthralgia [Unknown]
  - Abdominal pain [Unknown]
  - Depressed level of consciousness [Unknown]
  - Body temperature fluctuation [Unknown]
  - Loss of personal independence in daily activities [Unknown]
  - Muscular weakness [Unknown]
  - Affective disorder [Unknown]
  - Blood pressure abnormal [Unknown]
  - Blood glucose abnormal [Unknown]
  - Immune system disorder [Unknown]
  - Fatigue [Recovering/Resolving]
  - Nausea [Unknown]
  - Dizziness [Unknown]
  - Adrenal insufficiency [Recovering/Resolving]
  - Dyspnoea [Recovering/Resolving]
  - Pruritus [Unknown]

NARRATIVE: CASE EVENT DATE: 2017
